FAERS Safety Report 11462413 (Version 1)
Quarter: 2015Q3

REPORT INFORMATION
  Report Type: Spontaneous
  Country: US (occurrence: US)
  Receive Date: 20150831
  Receipt Date: 20150831
  Transmission Date: 20151125
  Serious: No
  Sender: FDA-Public Use
  Company Number: US-ELI_LILLY_AND_COMPANY-US201011003345

PATIENT
  Age: 58 Year
  Sex: Female

DRUGS (13)
  1. HYDROCHLOROTHIAZIDE. [Concomitant]
     Active Substance: HYDROCHLOROTHIAZIDE
     Dosage: 25 MG, DAILY (1/D)
  2. TOPAMAX [Concomitant]
     Active Substance: TOPIRAMATE
     Dosage: 150 MG, 2/D
  3. VITAMIN E [Concomitant]
     Active Substance: .ALPHA.-TOCOPHEROL
  4. NABUMETONE. [Concomitant]
     Active Substance: NABUMETONE
     Dosage: 1000 MG, DAILY (1/D)
  5. CYMBALTA [Suspect]
     Active Substance: DULOXETINE HYDROCHLORIDE
     Indication: PAIN
     Dosage: 30 MG, DAILY (1/D)
  6. CYMBALTA [Suspect]
     Active Substance: DULOXETINE HYDROCHLORIDE
     Dosage: 60 MG, DAILY (1/D)
  7. NEXIUM /USA/ [Concomitant]
     Dosage: 40 MG, 2/D
  8. MULTIVITAMIN [Concomitant]
     Active Substance: VITAMINS
  9. CYMBALTA [Suspect]
     Active Substance: DULOXETINE HYDROCHLORIDE
     Dosage: 30 MG, DAILY (1/D)
  10. MILNACIPRAN [Concomitant]
     Active Substance: MILNACIPRAN
     Dosage: 50 MG, 2/D
  11. FENTANYL. [Concomitant]
     Active Substance: FENTANYL
     Dosage: 25 UG, EVERY HOUR
  12. REGLAN [Concomitant]
     Active Substance: METOCLOPRAMIDE HYDROCHLORIDE
     Dosage: 10 MG, 4/D
  13. CYMBALTA [Suspect]
     Active Substance: DULOXETINE HYDROCHLORIDE
     Dosage: 30 MG, DAILY (1/D)
     Dates: end: 201010

REACTIONS (7)
  - General physical health deterioration [Unknown]
  - Drug ineffective [Recovered/Resolved]
  - Hearing impaired [Recovered/Resolved]
  - Intervertebral disc degeneration [Not Recovered/Not Resolved]
  - Visual impairment [Recovered/Resolved]
  - Hyperventilation [Recovered/Resolved]
  - Fear [Recovered/Resolved]
